FAERS Safety Report 9633235 (Version 1)
Quarter: 2013Q4

REPORT INFORMATION
  Report Type: Spontaneous
  Country: US (occurrence: None)
  Receive Date: 20131018
  Receipt Date: 20131018
  Transmission Date: 20140711
  Serious: Yes (Disabling)
  Sender: FDA-Public Use
  Company Number: None

PATIENT
  Age: 24 Year
  Sex: Male
  Weight: 66.23 kg

DRUGS (1)
  1. CETIRIZINE HYDROCHLORIDE [Suspect]
     Indication: HYPERSENSITIVITY
     Route: 048
     Dates: start: 19990101, end: 20131012

REACTIONS (11)
  - Anxiety [None]
  - Pruritus [None]
  - Pain [None]
  - Economic problem [None]
  - Product quality issue [None]
  - Paraesthesia [None]
  - Pruritus [None]
  - Burning sensation [None]
  - Unevaluable event [None]
  - Formication [None]
  - Depression [None]
